FAERS Safety Report 8641713 (Version 3)
Quarter: 2014Q3

REPORT INFORMATION
  Report Type: Spontaneous
  Country: US (occurrence: US)
  Receive Date: 20120628
  Receipt Date: 20140801
  Transmission Date: 20150326
  Serious: No
  Sender: FDA-Public Use
  Company Number: US-ASTRAZENECA-2012SE41622

PATIENT
  Age: 46 Year
  Sex: Female

DRUGS (3)
  1. TOPROL XL [Suspect]
     Active Substance: METOPROLOL SUCCINATE
     Indication: BLOOD PRESSURE
     Route: 048
  2. TOPROL XL [Suspect]
     Active Substance: METOPROLOL SUCCINATE
     Indication: BLOOD PRESSURE
     Route: 048
  3. TOPROL XL [Suspect]
     Active Substance: METOPROLOL SUCCINATE
     Indication: BLOOD PRESSURE
     Dosage: GENERIC
     Route: 048

REACTIONS (8)
  - Chest discomfort [Unknown]
  - Chest pain [Unknown]
  - Drug intolerance [Unknown]
  - Feeling abnormal [Unknown]
  - Drug dose omission [Recovered/Resolved]
  - Cardiac flutter [Unknown]
  - Drug ineffective [Unknown]
  - Asthma [Unknown]
